FAERS Safety Report 5525647-0 (Version None)
Quarter: 2007Q4

REPORT INFORMATION
  Report Type: 
  Country: None (occurrence: None)
  Receive Date: 20071126
  Receipt Date: 20071115
  Transmission Date: 20080405
  Serious: Yes (Death)
  Sender: FDA-Public Use
  Company Number: US-JNJFOC-20061100529

PATIENT
  Sex: Female
  Weight: 49.9 kg

DRUGS (8)
  1. RISPERDAL [Suspect]
     Indication: DRUG USE FOR UNKNOWN INDICATION
  2. ALBUTEROL [Concomitant]
  3. ELAVIL [Concomitant]
  4. LEVOTHYROXINE SODIUM [Concomitant]
  5. VALIUM [Concomitant]
  6. PROTONIX [Concomitant]
  7. ARICEPT [Concomitant]
  8. COUMADIN [Concomitant]

REACTIONS (1)
  - MYOCARDIAL INFARCTION [None]
